FAERS Safety Report 5904001-3 (Version None)
Quarter: 2008Q3

REPORT INFORMATION
  Report Type: 
  Country: None (occurrence: None)
  Receive Date: 20080930
  Receipt Date: 20080922
  Transmission Date: 20090109
  Serious: Yes (Hospitalization)
  Sender: FDA-Public Use
  Company Number: SG-GENENTECH-268512

PATIENT

DRUGS (9)
  1. FLUOROURACIL [Suspect]
     Indication: BREAST CANCER
  2. BLINDED BEVACIZUMAB [Suspect]
     Indication: BREAST CANCER
  3. BLINDED CAPECITABINE [Suspect]
     Indication: BREAST CANCER
  4. CYCLOPHOSPHAMIDE [Suspect]
     Indication: BREAST CANCER
  5. DOCETAXEL [Suspect]
     Indication: BREAST CANCER
  6. DOXORUBICIN HCL [Suspect]
     Indication: BREAST CANCER
  7. EPIRUBICIN [Suspect]
     Indication: BREAST CANCER
  8. PACLITAXEL [Suspect]
     Indication: BREAST CANCER
  9. BLINDED PLACEBO [Suspect]
     Indication: BREAST CANCER

REACTIONS (1)
  - PYREXIA [None]
